FAERS Safety Report 7029855-1 (Version None)
Quarter: 2010Q4

REPORT INFORMATION
  Report Type: 
  Country: None (occurrence: None)
  Receive Date: 20101006
  Receipt Date: 20100929
  Transmission Date: 20110411
  Serious: No
  Sender: FDA-Public Use
  Company Number: US-BIOGENIDEC-2010BI033778

PATIENT
  Sex: Female

DRUGS (2)
  1. AVONEX [Suspect]
     Indication: MULTIPLE SCLEROSIS
     Route: 030
     Dates: start: 20030101
  2. AVONEX [Suspect]
     Route: 030
     Dates: start: 19961101, end: 20030101

REACTIONS (9)
  - BLOOD CHOLESTEROL INCREASED [None]
  - CATARACT [None]
  - CONFUSIONAL STATE [None]
  - DEPRESSION [None]
  - FALL [None]
  - GAIT DISTURBANCE [None]
  - HEADACHE [None]
  - MEMORY IMPAIRMENT [None]
  - VISUAL ACUITY REDUCED [None]
